FAERS Safety Report 14166819 (Version 1)
Quarter: 2017Q4

REPORT INFORMATION
  Report Type: Report from Study
  Country: None (occurrence: BR)
  Receive Date: 20171107
  Receipt Date: 20171107
  Transmission Date: 20180321
  Serious: Yes (Death, Other)
  Sender: FDA-Public Use
  Company Number: BR-ABBVIE-17K-020-2156280-00

PATIENT
  Age: 55 Year
  Sex: Female

DRUGS (1)
  1. HUMIRA [Suspect]
     Active Substance: ADALIMUMAB
     Indication: RHEUMATOID ARTHRITIS
     Route: 058
     Dates: start: 20140129

REACTIONS (8)
  - Intestinal ischaemia [Unknown]
  - Skin discolouration [Unknown]
  - Skin necrosis [Unknown]
  - Infarction [Unknown]
  - Abdominal pain [Unknown]
  - Arthropod bite [Unknown]
  - Pain in extremity [Unknown]
  - Death [Fatal]

NARRATIVE: CASE EVENT DATE: 2016
